FAERS Safety Report 18663576 (Version 1)
Quarter: 2020Q4

REPORT INFORMATION
  Report Type: Report from Study
  Country: US (occurrence: US)
  Receive Date: 20201224
  Receipt Date: 20201224
  Transmission Date: 20210114
  Serious: Yes (Death)
  Sender: FDA-Public Use
  Company Number: US-ASTRAZENECA-2020SF72656

PATIENT
  Sex: Male
  Weight: 98 kg

DRUGS (1)
  1. TAGRISSO [Suspect]
     Active Substance: OSIMERTINIB
     Indication: CHEMOTHERAPY
     Route: 048
     Dates: start: 20200330

REACTIONS (2)
  - Death [Fatal]
  - Off label use [Unknown]
